FAERS Safety Report 4594796-6 (Version None)
Quarter: 2005Q1

REPORT INFORMATION
  Report Type: 
  Country: None (occurrence: None)
  Receive Date: 20050223
  Receipt Date: 20050104
  Transmission Date: 20050727
  Serious: Yes (Other)
  Sender: FDA-Public Use
  Company Number: 2005SE00939

PATIENT
  Age: 39 Year
  Sex: Male

DRUGS (4)
  1. SEROQUEL [Suspect]
     Indication: EPILEPSY
     Dosage: 125 MG DAILY PO
     Route: 049
  2. SEROQUEL [Suspect]
     Indication: PSYCHOTIC DISORDER
     Dosage: 125 MG DAILY PO
     Route: 049
  3. TEGRETOL [Suspect]
     Dosage: 600 MG DAILY
  4. BENZODIAZEPINE DROPS [Concomitant]

REACTIONS (1)
  - LEUKOPENIA [None]
